FAERS Safety Report 12001825 (Version 1)
Quarter: 2016Q1

REPORT INFORMATION
  Report Type: Report from Study
  Country: US (occurrence: US)
  Receive Date: 20160204
  Receipt Date: 20160204
  Transmission Date: 20160526
  Serious: Yes (Other)
  Sender: FDA-Public Use
  Company Number: US-ABBVIE-15K-163-1430391-00

PATIENT
  Sex: Male
  Weight: 70.37 kg

DRUGS (1)
  1. HUMIRA [Suspect]
     Active Substance: ADALIMUMAB
     Indication: COLITIS ULCERATIVE
     Route: 058
     Dates: start: 20140506

REACTIONS (5)
  - Photosensitivity reaction [Not Recovered/Not Resolved]
  - Urticaria [Unknown]
  - Lupus-like syndrome [Unknown]
  - Rash pruritic [Not Recovered/Not Resolved]
  - Rash pruritic [Unknown]

NARRATIVE: CASE EVENT DATE: 2014
